FAERS Safety Report 8573819-3 (Version None)
Quarter: 2012Q3

REPORT INFORMATION
  Report Type: 
  Country: None (occurrence: None)
  Receive Date: 20120806
  Receipt Date: 20110728
  Transmission Date: 20120928
  Serious: No
  Sender: FDA-Public Use
  Company Number: US-GLAXOSMITHKLINE-A0939590A

PATIENT
  Age: 62 Year
  Sex: Female

DRUGS (2)
  1. FLUTICASONE PROPIONATE [Suspect]
     Indication: PRODUCT USED FOR UNKNOWN INDICATION
     Route: 065
     Dates: start: 20081014
  2. FLUTICASONE PROPIONATE [Suspect]
     Route: 055

REACTIONS (2)
  - STOMATITIS [None]
  - DRUG INEFFECTIVE [None]
